FAERS Safety Report 6025364-7 (Version None)
Quarter: 2008Q4

REPORT INFORMATION
  Report Type: 
  Country: None (occurrence: None)
  Receive Date: 20081229
  Receipt Date: 20081229
  Transmission Date: 20090506
  Serious: Yes (Life-Threatening)
  Sender: FDA-Public Use
  Company Number: None

PATIENT
  Age: 15 Year
  Sex: Female
  Weight: 44.4525 kg

DRUGS (1)
  1. ALLEGRA-D 12 HOUR [Suspect]
     Indication: NASAL CONGESTION
     Dosage: 1 TABLET TWICE DAILY PO
     Route: 048
     Dates: start: 20040915, end: 20081228

REACTIONS (6)
  - ANGER [None]
  - ANOREXIA [None]
  - DEPRESSION [None]
  - HYPOPHAGIA [None]
  - MENTAL DISORDER [None]
  - MOOD ALTERED [None]
